FAERS Safety Report 4452095-7 (Version None)
Quarter: 2004Q3

REPORT INFORMATION
  Report Type: 
  Country: None (occurrence: None)
  Receive Date: 20040916
  Receipt Date: 20040907
  Transmission Date: 20050211
  Serious: Yes (Life-Threatening, Hospitalization, Disabling, Other)
  Sender: FDA-Public Use
  Company Number: CA-JNJFOC-20040205217

PATIENT
  Sex: Female

DRUGS (6)
  1. REMICADE [Suspect]
     Indication: RHEUMATOID ARTHRITIS
     Dosage: 3 MG/KG
     Route: 042
  2. PREDNISONE [Concomitant]
  3. NAPROXEN [Concomitant]
  4. METHOTREXATE [Concomitant]
  5. MEDICATION FOR BONES [Concomitant]
  6. MULTIVITAMIN [Concomitant]

REACTIONS (7)
  - CARDIAC OPERATION [None]
  - EYE PAIN [None]
  - HEADACHE [None]
  - MYOCARDIAL INFARCTION [None]
  - RESPIRATORY FAILURE [None]
  - TUBERCULOSIS [None]
  - VISUAL DISTURBANCE [None]
